FAERS Safety Report 14391406 (Version 1)
Quarter: 2018Q1

REPORT INFORMATION
  Report Type: Spontaneous
  Country: IN (occurrence: IN)
  Receive Date: 20180116
  Receipt Date: 20180116
  Transmission Date: 20180509
  Serious: Yes (Hospitalization, Other)
  Sender: FDA-Public Use
  Company Number: IN-VISTAPHARM, INC.-VER201709-000726

PATIENT
  Age: 70 Year
  Sex: Female

DRUGS (3)
  1. PHENYTOIN. [Suspect]
     Active Substance: PHENYTOIN
  2. PHENYTOIN. [Suspect]
     Active Substance: PHENYTOIN
     Route: 048
  3. PHENYTOIN. [Suspect]
     Active Substance: PHENYTOIN
     Indication: GENERALISED TONIC-CLONIC SEIZURE
     Route: 048

REACTIONS (7)
  - Fall [Unknown]
  - Hallucination, auditory [Unknown]
  - Dyskinesia [Recovered/Resolved]
  - Toxicity to various agents [Unknown]
  - Gait disturbance [Unknown]
  - Confusional state [Unknown]
  - Speech disorder [Unknown]
